FAERS Safety Report 24658511 (Version 1)
Quarter: 2024Q4

REPORT INFORMATION
  Report Type: Spontaneous
  Country: US (occurrence: None)
  Receive Date: 20241122
  Receipt Date: 20241122
  Transmission Date: 20250115
  Serious: Yes (Death)
  Sender: Public
  Company Number: None

PATIENT
  Age: 64 Year
  Sex: Female

DRUGS (2)
  1. COMETRIQ [Suspect]
     Active Substance: CABOZANTINIB S-MALATE
     Indication: Thyroid cancer
     Dosage: 60MG QD ORAL ??ND EXPIRATION DATE 30-JUN-2025
     Route: 048
     Dates: start: 20240119, end: 20241110
  2. COMETRIQ [Suspect]
     Active Substance: CABOZANTINIB S-MALATE

REACTIONS (4)
  - Diarrhoea [None]
  - Decreased appetite [None]
  - Pulmonary embolism [None]
  - Hospice care [None]

NARRATIVE: CASE EVENT DATE: 20241101
